FAERS Safety Report 17955629 (Version 1)
Quarter: 2020Q2

REPORT INFORMATION
  Report Type: Spontaneous
  Country: RU (occurrence: RU)
  Receive Date: 20200629
  Receipt Date: 20200629
  Transmission Date: 20200714
  Serious: Yes (Other)
  Sender: FDA-Public Use
  Company Number: RU-BAYER-2020-126896

PATIENT
  Age: 37 Year
  Sex: Female

DRUGS (2)
  1. YAZ PLUS [Suspect]
     Active Substance: DROSPIRENONE\ETHINYL ESTRADIOL
     Indication: CONTRACEPTION
     Dosage: UNK
     Route: 048
     Dates: start: 202003
  2. LOGEST [Suspect]
     Active Substance: ETHINYL ESTRADIOL\GESTODENE
     Indication: CONTRACEPTION
     Dosage: UNK
     Route: 048

REACTIONS (4)
  - Anuria [Not Recovered/Not Resolved]
  - Swelling [None]
  - Cystitis [Recovered/Resolved]
  - Pyelonephritis [Recovered/Resolved]

NARRATIVE: CASE EVENT DATE: 2019
